FAERS Safety Report 12270760 (Version 2)
Quarter: 2016Q2

REPORT INFORMATION
  Report Type: Report from Study
  Country: CA (occurrence: CA)
  Receive Date: 20160415
  Receipt Date: 20160426
  Transmission Date: 20160815
  Serious: Yes (Other)
  Sender: FDA-Public Use
  Company Number: CA-ROCHE-1619313

PATIENT
  Sex: Male

DRUGS (11)
  1. METFORMIN [Concomitant]
     Active Substance: METFORMIN HYDROCHLORIDE
  2. VASTATIN [Concomitant]
     Active Substance: SIMVASTATIN
  3. ESBRIET [Suspect]
     Active Substance: PIRFENIDONE
     Indication: IDIOPATHIC PULMONARY FIBROSIS
     Route: 048
     Dates: start: 20150427
  4. ESBRIET [Suspect]
     Active Substance: PIRFENIDONE
     Dosage: 1869 MG-2136 MG
     Route: 048
  5. AMLODIPINE [Concomitant]
     Active Substance: AMLODIPINE BESYLATE
  6. TAMULOSIN [Concomitant]
     Active Substance: TAMSULOSIN
  7. AVODART [Concomitant]
     Active Substance: DUTASTERIDE
  8. GLYBURIDE. [Concomitant]
     Active Substance: GLYBURIDE
  9. ONGLYZA [Concomitant]
     Active Substance: SAXAGLIPTIN HYDROCHLORIDE
  10. ESBRIET [Suspect]
     Active Substance: PIRFENIDONE
     Route: 048
     Dates: start: 20150504
  11. ESBRIET [Suspect]
     Active Substance: PIRFENIDONE
     Dosage: 267 MG-534 MG AND 167 MG
     Route: 048
     Dates: start: 2015

REACTIONS (9)
  - Respiratory failure [Recovered/Resolved]
  - Feeling hot [Unknown]
  - Decreased appetite [Not Recovered/Not Resolved]
  - Pulmonary function test abnormal [Unknown]
  - Seasonal allergy [Unknown]
  - Night sweats [Not Recovered/Not Resolved]
  - Dyspnoea [Recovered/Resolved]
  - Burning sensation [Unknown]
  - Decreased appetite [Unknown]
